FAERS Safety Report 10871533 (Version 1)
Quarter: 2015Q1

REPORT INFORMATION
  Report Type: Spontaneous
  Country: US (occurrence: US)
  Receive Date: 20150226
  Receipt Date: 20150226
  Transmission Date: 20150721
  Serious: Yes (Hospitalization)
  Sender: FDA-Public Use
  Company Number: US-GLAXOSMITHKLINE-US2015GSK025556

PATIENT
  Age: 10 Year
  Sex: Female

DRUGS (1)
  1. ALBUTEROL. [Suspect]
     Active Substance: ALBUTEROL
     Indication: RESPIRATORY DISORDER

REACTIONS (8)
  - Muscular weakness [Unknown]
  - Gait disturbance [Unknown]
  - Familial periodic paralysis [Unknown]
  - Wheezing [Unknown]
  - Hypokalaemia [Recovered/Resolved]
  - Hyperglycaemia [Unknown]
  - Cough [Unknown]
  - Hypoaesthesia [Unknown]
